FAERS Safety Report 9461390 (Version 1)
Quarter: 2013Q3

REPORT INFORMATION
  Report Type: Spontaneous
  Country: US (occurrence: None)
  Receive Date: 20130814
  Receipt Date: 20130814
  Transmission Date: 20140515
  Serious: Yes (Other)
  Sender: FDA-Public Use
  Company Number: None

PATIENT
  Age: 72 Year
  Sex: Female
  Weight: 58.97 kg

DRUGS (1)
  1. MELOXICAM [Suspect]
     Indication: ARTHRITIS
     Dosage: 15MG. I TOOK 1/2 PILL 1 PILL DAY 1 TIME A DAY MOUTH
     Route: 048
     Dates: start: 20130801, end: 20130801

REACTIONS (3)
  - Headache [None]
  - Middle insomnia [None]
  - Feeling hot [None]
